FAERS Safety Report 5527850-2 (Version None)
Quarter: 2007Q4

REPORT INFORMATION
  Report Type: 
  Country: None (occurrence: None)
  Receive Date: 20071126
  Receipt Date: 20071126
  Transmission Date: 20080405
  Serious: Yes (Other)
  Sender: FDA-Public Use
  Company Number: None

PATIENT
  Sex: Female
  Weight: 60 kg

DRUGS (1)
  1. COLISTIN SULFATE [Suspect]
     Indication: CYSTIC FIBROSIS
     Dosage: 500 MG Q 8 HR IV
     Route: 042
     Dates: start: 20071116, end: 20071120

REACTIONS (2)
  - PARAESTHESIA [None]
  - RENAL FAILURE ACUTE [None]
